FAERS Safety Report 6013346-0 (Version None)
Quarter: 2008Q4

REPORT INFORMATION
  Report Type: 
  Country: None (occurrence: None)
  Receive Date: 20081218
  Receipt Date: 20081218
  Transmission Date: 20090506
  Serious: No
  Sender: FDA-Public Use
  Company Number: None

PATIENT
  Age: 56 Year
  Sex: Male
  Weight: 86.1834 kg

DRUGS (2)
  1. RAMIPRIL [Suspect]
     Indication: BLOOD PRESSURE
     Dosage: 1 CAPSULE BY MOUTH TWICE DAILY ABOUT 2 YEAR NOW, JUST SWITCHED TO GENERIC IN AUGUST
     Route: 048
  2. DIOVAN [Concomitant]

REACTIONS (1)
  - BLOOD PRESSURE INCREASED [None]
